FAERS Safety Report 10064121 (Version 1)
Quarter: 2014Q2

REPORT INFORMATION
  Report Type: Spontaneous
  Country: US (occurrence: None)
  Receive Date: 20140404
  Receipt Date: 20140404
  Transmission Date: 20141212
  Serious: Yes (Death)
  Sender: FDA-Public Use
  Company Number: UTC-046569

PATIENT
  Age: 40 Year
  Sex: Female
  Weight: 81.64 kg

DRUGS (3)
  1. TYVASO [Suspect]
     Indication: PULMONARY ARTERIAL HYPERTENSION
     Dosage: 18-54 MCG (4 IN 1 D)
     Route: 055
     Dates: start: 20130325
  2. REVATIO (SILDENAFIL CITRATE) [Concomitant]
  3. COUMADIN (WARFARIN SODIUM) [Concomitant]

REACTIONS (1)
  - Death [None]
